FAERS Safety Report 5244141-8 (Version None)
Quarter: 2007Q1

REPORT INFORMATION
  Report Type: 
  Country: None (occurrence: None)
  Receive Date: 20061201
  Receipt Date: 20060818
  Transmission Date: 20070707
  Serious: No
  Sender: FDA-Public Use
  Company Number: 2006PV019687

PATIENT
  Age: 65 Year
  Sex: Female

DRUGS (4)
  1. BYETTA [Suspect]
     Indication: DIABETES MELLITUS
     Dosage: 10 MCG; 5 MCG; BID; SC
     Route: 058
     Dates: start: 20060701, end: 20060730
  2. BYETTA [Suspect]
     Indication: DIABETES MELLITUS
     Dosage: 10 MCG; 5 MCG; BID; SC
     Route: 058
     Dates: start: 20060731
  3. AMARYL [Concomitant]
  4. AVANDIA [Concomitant]

REACTIONS (5)
  - ASTHENIA [None]
  - BLOOD GLUCOSE DECREASED [None]
  - INJECTION SITE URTICARIA [None]
  - NERVOUSNESS [None]
  - TREMOR [None]
